FAERS Safety Report 7741170-7 (Version None)
Quarter: 2011Q3

REPORT INFORMATION
  Report Type: 
  Country: None (occurrence: None)
  Receive Date: 20110909
  Receipt Date: 20110829
  Transmission Date: 20111222
  Serious: Yes (Hospitalization)
  Sender: FDA-Public Use
  Company Number: CA-ELI_LILLY_AND_COMPANY-CA201108008443

PATIENT
  Sex: Female

DRUGS (5)
  1. CRESTOR [Concomitant]
  2. ASPIRIN [Concomitant]
  3. ZUCLOPENTHIXOL [Concomitant]
  4. ZYPREXA [Suspect]
     Indication: SCHIZOPHRENIA
     Dosage: 7.5 MG, UNK
     Dates: start: 20020522
  5. LIPIDIL [Concomitant]

REACTIONS (3)
  - WOUND INFECTION [None]
  - CYSTOSARCOMA PHYLLODES [None]
  - DIABETES MELLITUS [None]
